FAERS Safety Report 9893892 (Version 2)
Quarter: 2014Q2

REPORT INFORMATION
  Report Type: Spontaneous
  Country: US (occurrence: US)
  Receive Date: 20140213
  Receipt Date: 20140417
  Transmission Date: 20141212
  Serious: Yes (Hospitalization, Other)
  Sender: FDA-Public Use
  Company Number: US-JNJFOC-20140207063

PATIENT
  Age: 73 Year
  Sex: Male
  Weight: 84 kg

DRUGS (4)
  1. IMBRUVICA [Suspect]
     Indication: MANTLE CELL LYMPHOMA
     Route: 048
     Dates: start: 20140122, end: 20140127
  2. LOVENOX [Suspect]
     Indication: DEEP VEIN THROMBOSIS
     Dosage: 60-80 MG
     Route: 058
     Dates: start: 20140103, end: 20140126
  3. METFORMIN [Concomitant]
  4. ASPIRIN [Concomitant]
     Indication: THROMBOSIS PROPHYLAXIS
     Dates: end: 20140126

REACTIONS (4)
  - Haematoma [Recovering/Resolving]
  - Haemoglobin decreased [Recovering/Resolving]
  - Adrenal insufficiency [Unknown]
  - Diarrhoea [Recovering/Resolving]
